FAERS Safety Report 16155180 (Version 2)
Quarter: 2019Q2

REPORT INFORMATION
  Report Type: Spontaneous
  Country: US (occurrence: US)
  Receive Date: 20190403
  Receipt Date: 20190509
  Transmission Date: 20190711
  Serious: Yes (Hospitalization, Other)
  Sender: FDA-Public Use
  Company Number: US-TAKEDA-2019TUS016112

PATIENT
  Age: 76 Year
  Sex: Male

DRUGS (4)
  1. MIDODRINE [Concomitant]
     Active Substance: MIDODRINE
     Dosage: UNK
  2. CYCLOPHOSPHAMIDE. [Concomitant]
     Active Substance: CYCLOPHOSPHAMIDE
     Dosage: 50 MILLIGRAM, 1/WEEK
     Route: 048
     Dates: end: 201904
  3. DEXAMETHASONE. [Suspect]
     Active Substance: DEXAMETHASONE
     Indication: PLASMA CELL MYELOMA
     Dosage: 400 MILLIGRAM, 1/WEEK
     Route: 048
     Dates: start: 20181130, end: 201904
  4. NINLARO [Suspect]
     Active Substance: IXAZOMIB CITRATE
     Indication: PLASMA CELL MYELOMA
     Dosage: 4 MILLIGRAM, UNK
     Route: 048
     Dates: start: 20181130, end: 201904

REACTIONS (5)
  - Vomiting projectile [Unknown]
  - Sepsis [Unknown]
  - Dehydration [Unknown]
  - Off label use [Unknown]
  - Jaw fracture [Unknown]

NARRATIVE: CASE EVENT DATE: 201812
